FAERS Safety Report 6641368-5 (Version None)
Quarter: 2010Q1

REPORT INFORMATION
  Report Type: 
  Country: None (occurrence: None)
  Receive Date: 20100318
  Receipt Date: 20100312
  Transmission Date: 20100710
  Serious: Yes (Hospitalization, Other)
  Sender: FDA-Public Use
  Company Number: US-BAYER-201013128BCC

PATIENT
  Age: 51 Year
  Sex: Female

DRUGS (1)
  1. ALKA SELTZER PLUS COLD ORANGE ZEST [Suspect]
     Indication: DRUG USE FOR UNKNOWN INDICATION
     Route: 065

REACTIONS (3)
  - ANAPHYLACTIC SHOCK [None]
  - RASH GENERALISED [None]
  - URTICARIA [None]
